FAERS Safety Report 9561972 (Version 2)
Quarter: 2014Q2

REPORT INFORMATION
  Report Type: Spontaneous
  Country: US (occurrence: US)
  Receive Date: 20130927
  Receipt Date: 20140627
  Transmission Date: 20141212
  Serious: No
  Sender: FDA-Public Use
  Company Number: US-BIOGENIDEC-2013BI064633

PATIENT
  Age: 55 Year
  Sex: Female

DRUGS (15)
  1. TECFIDERA [Suspect]
     Indication: MULTIPLE SCLEROSIS
     Route: 048
  2. AMPYRA [Concomitant]
  3. CYMBALTA [Concomitant]
  4. FLEXERIL [Concomitant]
  5. HYDROCODONE ACETAMINOPHEN [Concomitant]
  6. IBUPROFEN [Concomitant]
  7. LASIX [Concomitant]
  8. MORPHINE SULFATE ER [Concomitant]
  9. NEURONTIN [Concomitant]
  10. PROGESTERONE MICRONIZED [Concomitant]
  11. PROZAC [Concomitant]
  12. REQUIP [Concomitant]
  13. SYNTHROID [Concomitant]
  14. TRAZODONE HCL [Concomitant]
  15. ZANTAC [Concomitant]

REACTIONS (4)
  - Alopecia [Not Recovered/Not Resolved]
  - Abdominal pain upper [Not Recovered/Not Resolved]
  - Nausea [Not Recovered/Not Resolved]
  - Diarrhoea [Not Recovered/Not Resolved]
